FAERS Safety Report 8050906-X (Version None)
Quarter: 2012Q1

REPORT INFORMATION
  Report Type: 
  Country: None (occurrence: None)
  Receive Date: 20120117
  Receipt Date: 20120110
  Transmission Date: 20120608
  Serious: Yes (Other)
  Sender: FDA-Public Use
  Company Number: PHEH2012US000750

PATIENT
  Age: 64 Year
  Sex: Female

DRUGS (6)
  1. CYMBALTA [Concomitant]
  2. CALCIUM CARBONATE [Concomitant]
  3. TOPAMAX [Concomitant]
  4. VITAMIN D [Concomitant]
  5. RECLAST [Suspect]
     Dosage: 5 MG/100 ML
     Route: 042
     Dates: start: 20101001
  6. PREVACID [Concomitant]

REACTIONS (1)
  - VIITH NERVE PARALYSIS [None]
